FAERS Safety Report 6236762-0 (Version None)
Quarter: 2009Q2

REPORT INFORMATION
  Report Type: 
  Country: None (occurrence: None)
  Receive Date: 20090619
  Receipt Date: 20090611
  Transmission Date: 20091009
  Serious: Yes (Hospitalization)
  Sender: FDA-Public Use
  Company Number: PHHY2009RO23004

PATIENT
  Sex: Female

DRUGS (1)
  1. GLEEVEC [Suspect]
     Indication: ENDOMETRIAL SARCOMA
     Dosage: 50MG OR 100MG HARD CAPSULES /100MG OR 400MG FILM-COATED TABLETS
     Dates: start: 20090501

REACTIONS (3)
  - CYANOSIS [None]
  - DIARRHOEA [None]
  - HYPOTENSION [None]
